FAERS Safety Report 15128532 (Version 1)
Quarter: 2018Q3

REPORT INFORMATION
  Report Type: Spontaneous
  Country: GB (occurrence: GB)
  Receive Date: 20180711
  Receipt Date: 20180711
  Transmission Date: 20181010
  Serious: Yes (Hospitalization, Other)
  Sender: FDA-Public Use
  Company Number: GB-CONCORDIA PHARMACEUTICALS INC.-GSH201807-002359

PATIENT
  Age: 72 Year
  Sex: Male

DRUGS (6)
  1. HYDROXYCHLOROQUINE [Suspect]
     Active Substance: HYDROXYCHLOROQUINE
     Route: 048
  2. NYSTATIN. [Concomitant]
     Active Substance: NYSTATIN
  3. FELODIPINE. [Concomitant]
     Active Substance: FELODIPINE
  4. LANSOPRAZOLE. [Concomitant]
     Active Substance: LANSOPRAZOLE
  5. ENALAPRIL [Concomitant]
     Active Substance: ENALAPRIL
  6. ACETYLSALICYLIC ACID [Concomitant]
     Active Substance: ASPIRIN

REACTIONS (1)
  - Pancytopenia [Recovering/Resolving]
